FAERS Safety Report 15892448 (Version 1)
Quarter: 2019Q1

REPORT INFORMATION
  Report Type: Report from Study
  Country: US (occurrence: US)
  Receive Date: 20190130
  Receipt Date: 20190130
  Transmission Date: 20190417
  Serious: No
  Sender: FDA-Public Use
  Company Number: US-EXELIXIS-CABO-18014673

PATIENT
  Age: 61 Year
  Sex: Female
  Weight: 70.1 kg

DRUGS (9)
  1. COUMADIN [Concomitant]
     Active Substance: WARFARIN SODIUM
  2. NORCO [Concomitant]
     Active Substance: ACETAMINOPHEN\HYDROCODONE BITARTRATE
  3. CABOMETYX [Suspect]
     Active Substance: CABOZANTINIB S-MALATE
     Indication: OVARIAN CANCER
     Dosage: 60 MG, QD ONE TABLET BY MOUTH DAILY
     Route: 048
     Dates: start: 20180607, end: 20180620
  4. WARFARIN [Concomitant]
     Active Substance: WARFARIN
  5. FOLIC ACID. [Concomitant]
     Active Substance: FOLIC ACID
  6. DEXAMETHASONE. [Concomitant]
     Active Substance: DEXAMETHASONE
  7. HEPARIN [Concomitant]
     Active Substance: HEPARIN SODIUM
  8. ELIQUIS [Concomitant]
     Active Substance: APIXABAN
  9. ONDANSETRON [Concomitant]
     Active Substance: ONDANSETRON
     Indication: NAUSEA

REACTIONS (13)
  - Dysphagia [Unknown]
  - Off label use [Unknown]
  - Headache [Unknown]
  - Fatigue [Unknown]
  - Thinking abnormal [Unknown]
  - Tongue ulceration [Unknown]
  - Amnesia [Unknown]
  - Oropharyngeal pain [Unknown]
  - Dizziness [Unknown]
  - Tongue exfoliation [Unknown]
  - Dyspepsia [Recovering/Resolving]
  - Epistaxis [Unknown]
  - Stomatitis [Unknown]

NARRATIVE: CASE EVENT DATE: 201806
